FAERS Safety Report 19992975 (Version 1)
Quarter: 2021Q4

REPORT INFORMATION
  Report Type: Spontaneous
  Country: EC (occurrence: EC)
  Receive Date: 20211025
  Receipt Date: 20211025
  Transmission Date: 20220303
  Serious: Yes (Other)
  Sender: FDA-Public Use
  Company Number: EC-NOVARTISPH-NVSC2021EC242687

PATIENT
  Sex: Female

DRUGS (1)
  1. NEVANAC [Suspect]
     Active Substance: NEPAFENAC
     Indication: Postoperative care
     Dosage: 0.1 %
     Route: 047

REACTIONS (3)
  - Corneal opacity [Unknown]
  - Corneal oedema [Unknown]
  - Vision blurred [Unknown]
